FAERS Safety Report 5397010-7 (Version None)
Quarter: 2007Q3

REPORT INFORMATION
  Report Type: 
  Country: None (occurrence: None)
  Receive Date: 20070725
  Receipt Date: 20070717
  Transmission Date: 20080115
  Serious: Yes (Other)
  Sender: FDA-Public Use
  Company Number: EG-ROXANE LABORATORIES, INC-2007-BP-17695RO

PATIENT
  Age: 32 Year
  Sex: Male

DRUGS (4)
  1. AZATHIOPRINE [Suspect]
     Indication: IMMUNOSUPPRESSANT DRUG THERAPY
  2. STEROID [Suspect]
     Indication: IMMUNOSUPPRESSANT DRUG THERAPY
  3. CYCLOSPORINE [Suspect]
     Indication: IMMUNOSUPPRESSANT DRUG THERAPY
  4. BASILIXIMAB [Suspect]
     Indication: IMMUNOSUPPRESSANT DRUG THERAPY
     Dosage: DAYS 0 AND 4

REACTIONS (4)
  - BLOOD CREATININE ABNORMAL [None]
  - OLIGURIA [None]
  - PYREXIA [None]
  - THROMBOTIC MICROANGIOPATHY [None]
